FAERS Safety Report 6267163-7 (Version None)
Quarter: 2009Q3

REPORT INFORMATION
  Report Type: 
  Country: None (occurrence: None)
  Receive Date: 20090714
  Receipt Date: 20081201
  Transmission Date: 20100115
  Serious: No
  Sender: FDA-Public Use
  Company Number: US-ABBOTT-08P-163-0489831-00

PATIENT
  Sex: Female
  Weight: 68.1 kg

DRUGS (4)
  1. K-TAB [Suspect]
     Indication: MINERAL SUPPLEMENTATION
     Route: 048
  2. LETROZOLE [Concomitant]
     Indication: DRUG USE FOR UNKNOWN INDICATION
  3. MAGNESIUM OXIDE [Concomitant]
     Indication: MINERAL SUPPLEMENTATION
     Dosage: 200 MG AT SUPPER
     Route: 048
  4. THYROID TAB [Concomitant]
     Indication: HYPOTHYROIDISM
     Route: 048
     Dates: start: 20080801

REACTIONS (1)
  - MEDICATION RESIDUE [None]
